FAERS Safety Report 26095193 (Version 2)
Quarter: 2025Q4

REPORT INFORMATION
  Report Type: Spontaneous
  Country: CN (occurrence: None)
  Receive Date: 20251127
  Receipt Date: 20251215
  Transmission Date: 20260118
  Serious: Yes (Life-Threatening, Hospitalization)
  Sender: JIANGSU HANSOH PHARMACEUTICAL GROUP CO., LTD.
  Company Number: CN-Hansoh-20252190021907

PATIENT
  Sex: Male

DRUGS (10)
  1. PEMETREXED DISODIUM [Suspect]
     Active Substance: PEMETREXED DISODIUM
     Indication: Lung adenocarcinoma stage IV
     Dosage: 860 MG, Q3W
     Route: 041
     Dates: start: 20250515, end: 20250515
  2. PEMETREXED DISODIUM [Suspect]
     Active Substance: PEMETREXED DISODIUM
     Dosage: 860 MG, Q3W
     Route: 041
     Dates: start: 20250605, end: 20250605
  3. PEMETREXED DISODIUM [Suspect]
     Active Substance: PEMETREXED DISODIUM
     Dosage: 860 MG, Q3W
     Route: 041
     Dates: start: 20250628, end: 20250628
  4. PEMETREXED DISODIUM [Suspect]
     Active Substance: PEMETREXED DISODIUM
     Dosage: 860 MG, Q3W
     Route: 041
     Dates: start: 20250721, end: 20250721
  5. CARBOPLATIN [Suspect]
     Active Substance: CARBOPLATIN
     Indication: Lung adenocarcinoma stage IV
     Dosage: 750 MG
     Route: 041
     Dates: start: 20250515, end: 20250515
  6. CARBOPLATIN [Suspect]
     Active Substance: CARBOPLATIN
     Dosage: 750 MG
     Route: 041
     Dates: start: 20250605, end: 20250605
  7. CARBOPLATIN [Suspect]
     Active Substance: CARBOPLATIN
     Dosage: 750 MG
     Route: 041
     Dates: start: 20250628, end: 20250628
  8. CARBOPLATIN [Suspect]
     Active Substance: CARBOPLATIN
     Dosage: 750 MG
     Route: 041
     Dates: start: 20250721, end: 20250721
  9. PEMBROLIZUMAB [Suspect]
     Active Substance: PEMBROLIZUMAB
     Indication: Lung adenocarcinoma stage IV
     Dosage: 400 MG, Q42D
     Route: 041
     Dates: start: 20250515, end: 20250515
  10. PEMBROLIZUMAB [Suspect]
     Active Substance: PEMBROLIZUMAB
     Dosage: 400 MG, Q42D
     Route: 041
     Dates: start: 20250628, end: 20250628

REACTIONS (2)
  - Immune-mediated lung disease [Recovering/Resolving]
  - Upper respiratory tract infection [Recovered/Resolved]

NARRATIVE: CASE EVENT DATE: 20250626
